FAERS Safety Report 13343724 (Version 1)
Quarter: 2017Q1

REPORT INFORMATION
  Report Type: Report from Study
  Country: MY (occurrence: MY)
  Receive Date: 20170316
  Receipt Date: 20170316
  Transmission Date: 20170428
  Serious: Yes (Hospitalization, Other)
  Sender: FDA-Public Use
  Company Number: PHHY2016MY074784

PATIENT
  Sex: Male

DRUGS (3)
  1. VOTRIENT [Suspect]
     Active Substance: PAZOPANIB HYDROCHLORIDE
     Dosage: 800 MG, UNK
     Route: 048
     Dates: start: 20160623, end: 20161012
  2. VOTRIENT [Suspect]
     Active Substance: PAZOPANIB HYDROCHLORIDE
     Indication: RENAL CELL CARCINOMA RECURRENT
     Dosage: 800 MG, QD
     Route: 048
     Dates: start: 201604
  3. VOTRIENT [Suspect]
     Active Substance: PAZOPANIB HYDROCHLORIDE
     Dosage: 600 MG, QD
     Route: 048

REACTIONS (8)
  - Thrombosis [Unknown]
  - Dizziness [Recovering/Resolving]
  - Blister [Recovered/Resolved]
  - Cough [Unknown]
  - Dyspnoea [Unknown]
  - Blood pressure increased [Recovered/Resolved]
  - Haemoglobin decreased [Recovering/Resolving]
  - Blood pressure systolic increased [Unknown]
